FAERS Safety Report 15884403 (Version 1)
Quarter: 2019Q1

REPORT INFORMATION
  Report Type: Spontaneous
  Country: US (occurrence: US)
  Receive Date: 20190129
  Receipt Date: 20190129
  Transmission Date: 20190417
  Serious: Yes (Other)
  Sender: FDA-Public Use
  Company Number: US-PFIZER INC-2019035314

PATIENT
  Age: 13 Year
  Sex: Female
  Weight: 31.75 kg

DRUGS (1)
  1. ETHOSUXIMIDE. [Suspect]
     Active Substance: ETHOSUXIMIDE
     Indication: EPILEPSY
     Dosage: 500 MG, 2X/DAY (2 CAPSULES BY MOUTH IN THE MORNING, 2 CAPSULES BY MOUTH IN THE EVENING)
     Route: 048
     Dates: start: 201812

REACTIONS (3)
  - Product quality issue [Unknown]
  - Seizure [Unknown]
  - Poor quality product administered [Unknown]

NARRATIVE: CASE EVENT DATE: 201901
